FAERS Safety Report 15220217 (Version 1)
Quarter: 2018Q3

REPORT INFORMATION
  Report Type: Spontaneous
  Country: UY (occurrence: UY)
  Receive Date: 20180731
  Receipt Date: 20180731
  Transmission Date: 20181010
  Serious: Yes (Hospitalization)
  Sender: FDA-Public Use
  Company Number: UY-B.I. PHARMACEUTICALS,INC./RIDGEFIELD-2018-BI-037494

PATIENT
  Age: 80 Year
  Sex: Female

DRUGS (5)
  1. MICARDIS [Suspect]
     Active Substance: TELMISARTAN
     Route: 048
  2. MICARDIS [Suspect]
     Active Substance: TELMISARTAN
     Indication: HYPERTENSION
     Route: 048
     Dates: start: 1998
  3. MICARDIS [Suspect]
     Active Substance: TELMISARTAN
     Dosage: FREQUENCY? ONE AND A HALF 40 MG TABLET PER DAY.
     Route: 048
  4. DIGOXIL [Concomitant]
     Indication: CARDIAC FAILURE
     Route: 065
  5. ALERFEDINE [Concomitant]
     Indication: HYPERSENSITIVITY
     Route: 065

REACTIONS (3)
  - Hyperkalaemia [Not Recovered/Not Resolved]
  - Arrhythmia [Recovered/Resolved]
  - Wrong technique in product usage process [Unknown]

NARRATIVE: CASE EVENT DATE: 201712
